FAERS Safety Report 5329408-7 (Version None)
Quarter: 2007Q2

REPORT INFORMATION
  Report Type: 
  Country: None (occurrence: None)
  Receive Date: 20070518
  Receipt Date: 20070511
  Transmission Date: 20071010
  Serious: Yes (Hospitalization)
  Sender: FDA-Public Use
  Company Number: DE-ABBOTT-07P-062-0368191-00

PATIENT
  Sex: Male
  Weight: 73.1 kg

DRUGS (4)
  1. KALETRA [Suspect]
     Indication: HIV INFECTION
     Route: 048
     Dates: start: 20070425
  2. KALETRA [Suspect]
     Route: 048
     Dates: start: 20070110, end: 20070329
  3. ZIDOVUDINE W/LAMIVUDINE [Concomitant]
     Indication: HIV INFECTION
     Route: 048
     Dates: start: 19961201, end: 20070329
  4. ZIDOVUDINE W/LAMIVUDINE [Concomitant]
     Route: 048
     Dates: start: 20070425

REACTIONS (5)
  - ALANINE AMINOTRANSFERASE INCREASED [None]
  - ALCOHOLISM [None]
  - ASPARTATE AMINOTRANSFERASE INCREASED [None]
  - BLOOD LACTATE DEHYDROGENASE INCREASED [None]
  - GAMMA-GLUTAMYLTRANSFERASE INCREASED [None]
